FAERS Safety Report 25190892 (Version 1)
Quarter: 2025Q2

REPORT INFORMATION
  Report Type: Spontaneous
  Country: US (occurrence: US)
  Receive Date: 20250411
  Receipt Date: 20250411
  Transmission Date: 20250716
  Serious: No
  Sender: INCYTE
  Company Number: US-EVENT-002321

PATIENT
  Age: 55 Year
  Weight: 89.796 kg

DRUGS (1)
  1. OPZELURA [Suspect]
     Active Substance: RUXOLITINIB PHOSPHATE
     Indication: Systemic lupus erythematosus
     Dosage: 1.5 PERCENT, APPLY A THIN LAYER TO AFFECTED AREA(S) (LIGHT SPOTS) TWICE DAILY AS DIRECTED
     Route: 065

REACTIONS (1)
  - Off label use [Unknown]
